FAERS Safety Report 4809862-7 (Version None)
Quarter: 2005Q4

REPORT INFORMATION
  Report Type: 
  Country: None (occurrence: None)
  Receive Date: 20051024
  Receipt Date: 20051024
  Transmission Date: 20060501
  Serious: Yes (Life-Threatening)
  Sender: FDA-Public Use
  Company Number: None

PATIENT
  Age: 27 Year
  Sex: Female
  Weight: 53.5244 kg

DRUGS (1)
  1. COMTREX [Suspect]
     Dosage: 2 AT BEDTIME PO
     Route: 048

REACTIONS (8)
  - ADVERSE DRUG REACTION [None]
  - ANXIETY [None]
  - ARTERIOVENOUS MALFORMATION [None]
  - CONDITION AGGRAVATED [None]
  - CONVULSION [None]
  - INTRACRANIAL ANEURYSM [None]
  - LOSS OF CONSCIOUSNESS [None]
  - MIGRAINE [None]
